FAERS Safety Report 7083468-4 (Version None)
Quarter: 2010Q4

REPORT INFORMATION
  Report Type: 
  Country: None (occurrence: None)
  Receive Date: 20101104
  Receipt Date: 20101027
  Transmission Date: 20110411
  Serious: Yes (Other)
  Sender: FDA-Public Use
  Company Number: B0682708A

PATIENT
  Sex: Female

DRUGS (2)
  1. LAMICTAL [Suspect]
     Dosage: 200MG PER DAY
  2. EFFEXOR [Suspect]

REACTIONS (4)
  - BIPOLAR DISORDER [None]
  - DRUG INTERACTION [None]
  - GLAUCOMA [None]
  - VISION BLURRED [None]
